FAERS Safety Report 16884274 (Version 1)
Quarter: 2019Q4

REPORT INFORMATION
  Report Type: Spontaneous
  Country: US (occurrence: US)
  Receive Date: 20190808
  Receipt Date: 20190808
  Transmission Date: 20200122
  Serious: No
  Sender: FDA-Public Use
  Company Number: None

PATIENT
  Age: 77 Year
  Sex: Female

DRUGS (1)
  1. BEXAROTENE 75MG CAP [Suspect]
     Active Substance: BEXAROTENE
     Route: 047
     Dates: start: 201704

REACTIONS (2)
  - Feeling abnormal [None]
  - Amnesia [None]

NARRATIVE: CASE EVENT DATE: 20190808
